FAERS Safety Report 12647664 (Version 1)
Quarter: 2016Q3

REPORT INFORMATION
  Report Type: Spontaneous
  Country: US (occurrence: None)
  Receive Date: 20160811
  Receipt Date: 20160811
  Transmission Date: 20161109
  Serious: Yes (Hospitalization)
  Sender: FDA-Public Use
  Company Number: None

PATIENT
  Age: 16 Year
  Sex: Male
  Weight: 127.3 kg

DRUGS (3)
  1. CYCLOPHOSPHAMIDE. [Suspect]
     Active Substance: CYCLOPHOSPHAMIDE
     Dates: end: 20160722
  2. METHOTREXATE. [Suspect]
     Active Substance: METHOTREXATE
     Dates: end: 20160718
  3. ETOPOSIDE (VP-16) [Suspect]
     Active Substance: ETOPOSIDE
     Dates: end: 20160722

REACTIONS (11)
  - Asthenia [None]
  - Agitation [None]
  - Nuclear magnetic resonance imaging brain abnormal [None]
  - Aphasia [None]
  - Febrile neutropenia [None]
  - Electroencephalogram abnormal [None]
  - Pyrexia [None]
  - Aggression [None]
  - Lethargy [None]
  - Confusional state [None]
  - Neurotoxicity [None]

NARRATIVE: CASE EVENT DATE: 20160729
